FAERS Safety Report 13938397 (Version 1)
Quarter: 2017Q3

REPORT INFORMATION
  Report Type: Spontaneous
  Country: US (occurrence: US)
  Receive Date: 20170905
  Receipt Date: 20170905
  Transmission Date: 20171127
  Serious: Yes (Life-Threatening, Hospitalization, Disabling, Other)
  Sender: FDA-Public Use
  Company Number: None

PATIENT
  Sex: Female
  Weight: 43.2 kg

DRUGS (11)
  1. LUTEIN + ZEAXANTHIN [Concomitant]
  2. MELATONIN [Concomitant]
     Active Substance: MELATONIN
  3. FISH OIL [Concomitant]
     Active Substance: FISH OIL
  4. COQ10 [Concomitant]
     Active Substance: UBIDECARENONE
  5. CIPLA [Concomitant]
     Route: 048
  6. VITAMIN C [Concomitant]
     Active Substance: ASCORBIC ACID
  7. CALCIUM [Concomitant]
     Active Substance: CALCIUM
  8. BABY ASPIRIN [Concomitant]
     Active Substance: ASPIRIN
  9. ALENDRONATE SODIUM. [Suspect]
     Active Substance: ALENDRONATE SODIUM
     Indication: OSTEOPOROSIS
     Dosage: ?          QUANTITY:1 TABLET(S);OTHER FREQUENCY:1 DAY A WEEK;?
     Route: 048
     Dates: start: 20150701, end: 20170815
  10. MULTI VITAMIN [Concomitant]
     Active Substance: VITAMINS
  11. GLUCOSAMINE WITH MSN [Concomitant]

REACTIONS (4)
  - Dyspnoea exertional [None]
  - Dizziness exertional [None]
  - Chest discomfort [None]
  - Hyperhidrosis [None]

NARRATIVE: CASE EVENT DATE: 20170824
